FAERS Safety Report 8152688-X (Version None)
Quarter: 2012Q1

REPORT INFORMATION
  Report Type: 
  Country: None (occurrence: None)
  Receive Date: 20120221
  Receipt Date: 20120213
  Transmission Date: 20120608
  Serious: Yes (Other)
  Sender: FDA-Public Use
  Company Number: US-GENZYME-MOZO-1000611

PATIENT
  Sex: Female
  Weight: 50.34 kg

DRUGS (36)
  1. MOZOBIL [Suspect]
     Dosage: 23000 MCG, QD
     Route: 058
     Dates: start: 20111205, end: 20111209
  2. NEUPOGEN [Concomitant]
     Indication: MYELODYSPLASTIC SYNDROME
     Dosage: 268 MCG, QD
     Route: 058
     Dates: start: 20111031, end: 20111104
  3. METOPROLOL SUCCINATE [Concomitant]
     Dosage: 50 MG, QD
     Route: 048
     Dates: start: 20111205, end: 20111209
  4. PREDNISONE [Concomitant]
     Indication: PREMEDICATION
     Dosage: 20 MG, QD
     Route: 048
     Dates: start: 20111031, end: 20111104
  5. VALACICLOVIR [Concomitant]
     Indication: PROPHYLAXIS
     Dosage: 500 MG, QD
     Route: 048
     Dates: start: 20111031, end: 20111104
  6. FAMOTIDINE [Concomitant]
     Indication: ANTACID THERAPY
     Dosage: 20 MG, BID
     Route: 048
     Dates: start: 20111031, end: 20111104
  7. FAMOTIDINE [Concomitant]
     Dosage: 20 MG, BID
     Route: 048
     Dates: start: 20111204, end: 20111209
  8. HYDROMORPHONE HCL [Concomitant]
     Indication: BIOPSY BONE MARROW
     Dosage: 0.5 MG, ONCE
     Route: 040
     Dates: start: 20111104, end: 20111104
  9. ACETAMINOPHEN [Concomitant]
     Indication: PAIN
     Dosage: 650 MG, ONCE
     Route: 048
     Dates: start: 20111205, end: 20111205
  10. SODIUM CHLORIDE [Concomitant]
     Indication: DENTAL DISORDER PROPHYLAXIS
     Dosage: 30 ML, QID
     Route: 050
     Dates: start: 20111031, end: 20111104
  11. SODIUM CHLORIDE [Concomitant]
     Dosage: 30 ML, QID
     Route: 050
     Dates: start: 20111205, end: 20111209
  12. METOPROLOL SUCCINATE [Concomitant]
     Indication: CARDIOVASCULAR DISORDER
     Dosage: 50 MG, QD
     Route: 048
     Dates: start: 20111031, end: 20111104
  13. PREDNISONE [Concomitant]
     Dosage: 5 MG, QD
     Route: 048
     Dates: start: 20111205, end: 20111209
  14. HYDROCODONE W [Concomitant]
     Indication: PAIN
     Dosage: UNK MG, PRN
     Route: 048
     Dates: start: 20111030, end: 20111103
  15. MIDAZOLAM [Concomitant]
     Dosage: 0.5 MG, ONCE
     Route: 040
     Dates: start: 20111104, end: 20111104
  16. METRONIDAZOLE [Concomitant]
     Indication: CLOSTRIDIAL INFECTION
     Dosage: 500 MG, TID
     Route: 048
     Dates: start: 20111031, end: 20111103
  17. POTASSIUM CHLORIDE [Concomitant]
     Indication: HYPOKALAEMIA
     Dosage: 40 MEQ, PRN
     Route: 048
     Dates: start: 20111031, end: 20111031
  18. POTASSIUM CHLORIDE [Concomitant]
     Dosage: 40 MEQ, ONCE
     Route: 042
     Dates: start: 20111103, end: 20111103
  19. HYDROMORPHONE HCL [Concomitant]
     Dosage: 0.5 MG, ONCE
     Route: 040
     Dates: start: 20111104, end: 20111104
  20. MIDAZOLAM [Concomitant]
     Indication: BIOPSY BONE MARROW
     Dosage: 0.5 MG, ONCE
     Route: 040
     Dates: start: 20111104, end: 20111104
  21. ACETAMINOPHEN [Concomitant]
     Dosage: 650 MG, PRN
     Route: 048
     Dates: start: 20111204, end: 20111209
  22. MENTHOL [Concomitant]
     Indication: OROPHARYNGEAL PAIN
     Dosage: UNK
     Route: 050
     Dates: start: 20111205, end: 20111205
  23. AZACITIDINE [Concomitant]
     Dosage: 117 MG, QD
     Route: 058
     Dates: start: 20111205, end: 20111209
  24. SODIUM CHLORIDE [Concomitant]
     Indication: FLUID REPLACEMENT
     Dosage: 1000 ML, ONCE
     Route: 042
     Dates: start: 20111102, end: 20111102
  25. NEUPOGEN [Concomitant]
     Dosage: 258 MCG, QD
     Route: 058
     Dates: start: 20111205, end: 20111209
  26. SODIUM CHLORIDE [Concomitant]
     Indication: PLATELET TRANSFUSION
     Dosage: 250 ML, ONCE
     Route: 042
     Dates: start: 20111031, end: 20111031
  27. MAGNESIUM HYDROXIDE W [Concomitant]
     Indication: DYSPEPSIA
     Dosage: 15 ML, ONCE
     Route: 048
     Dates: start: 20111206, end: 20111206
  28. MAGNESIUM HYDROXIDE W [Concomitant]
     Dosage: 30 ML, PRN
     Route: 048
     Dates: start: 20111207, end: 20111207
  29. AZACITIDINE [Concomitant]
     Indication: MYELODYSPLASTIC SYNDROME
     Dosage: 119 MG, QD
     Route: 058
     Dates: start: 20111031, end: 20111104
  30. SODIUM CHLORIDE [Concomitant]
     Indication: INTRAVENOUS CATHETER MANAGEMENT
     Dosage: 10 ML, TID
     Route: 040
     Dates: start: 20111204, end: 20111209
  31. HYDROMORPHONE HCL [Concomitant]
     Dosage: 0.5 MG, ONCE
     Route: 040
     Dates: start: 20111104, end: 20111104
  32. MIDAZOLAM [Concomitant]
     Dosage: 0.5 MG, ONCE
     Route: 040
     Dates: start: 20111104, end: 20111104
  33. MOZOBIL [Suspect]
     Indication: MYELODYSPLASTIC SYNDROME
     Dosage: 24000 MCG, QD
     Route: 058
     Dates: start: 20111031, end: 20111104
  34. ALLOPURINOL [Concomitant]
     Indication: PROPHYLAXIS
     Dosage: 300 MG, QD
     Route: 048
     Dates: start: 20111103, end: 20111104
  35. RASBURICASE [Concomitant]
     Indication: HYPERURICAEMIA
     Dosage: 6 MG, ONCE
     Route: 042
     Dates: start: 20111205, end: 20111205
  36. LOPERAMIDE HCL [Concomitant]
     Indication: DIARRHOEA
     Dosage: 2 MG, PRN
     Route: 048
     Dates: start: 20111207, end: 20111207

REACTIONS (5)
  - ANXIETY [None]
  - DECREASED APPETITE [None]
  - THROMBOCYTOSIS [None]
  - INSOMNIA [None]
  - NAUSEA [None]
